FAERS Safety Report 6016912-1 (Version None)
Quarter: 2008Q4

REPORT INFORMATION
  Report Type: 
  Country: None (occurrence: None)
  Receive Date: 20081219
  Receipt Date: 20081212
  Transmission Date: 20090506
  Serious: Yes (Hospitalization)
  Sender: FDA-Public Use
  Company Number: 2008JP005795

PATIENT
  Age: 26 Year
  Sex: Female

DRUGS (2)
  1. PROGRAF [Suspect]
     Indication: RHEUMATOID ARTHRITIS
     Dosage: 3 MG, ORAL
     Route: 048
  2. PREDNISOLONE [Concomitant]

REACTIONS (2)
  - HEADACHE [None]
  - NEUROPSYCHIATRIC LUPUS [None]
